FAERS Safety Report 12709182 (Version 1)
Quarter: 2016Q3

REPORT INFORMATION
  Report Type: Spontaneous
  Country: US (occurrence: US)
  Receive Date: 20160901
  Receipt Date: 20160901
  Transmission Date: 20161109
  Serious: No
  Sender: FDA-Public Use
  Company Number: US-BAXTER-2016BAX043311

PATIENT
  Age: 17 Year
  Sex: Male
  Weight: 56.75 kg

DRUGS (6)
  1. CEFEPIME [Suspect]
     Active Substance: CEFEPIME HYDROCHLORIDE
     Indication: OSTEOMYELITIS
     Dosage: AT A DURATION OF 3-5 MIN (1 SYRINGE)
     Route: 040
     Dates: start: 20160718, end: 20160804
  2. FLORASTOR PROBIOTIC [Concomitant]
     Indication: PRODUCT USED FOR UNKNOWN INDICATION
     Dosage: 2 CAPSULES A DAY
     Route: 065
     Dates: start: 20160721
  3. CEFEPIME [Suspect]
     Active Substance: CEFEPIME HYDROCHLORIDE
     Indication: OSTEOMYELITIS
     Route: 065
     Dates: start: 20160714, end: 20160718
  4. STERILE WATER FOR INJECTION [Suspect]
     Active Substance: WATER
     Indication: MEDICATION DILUTION
     Dosage: AT A DURATION OF 3-5 MIN
     Route: 040
     Dates: start: 20160718, end: 20160804
  5. CLINDAMYCIN [Suspect]
     Active Substance: CLINDAMYCIN\CLINDAMYCIN PHOSPHATE
     Indication: PRODUCT USED FOR UNKNOWN INDICATION
     Route: 042
  6. NICOTINE. [Concomitant]
     Active Substance: NICOTINE
     Indication: PRODUCT USED FOR UNKNOWN INDICATION
     Dosage: VAPES
     Route: 065

REACTIONS (6)
  - Pyrexia [Unknown]
  - Incorrect drug administration rate [Unknown]
  - Ocular hyperaemia [Unknown]
  - Feeling hot [Unknown]
  - Chills [Unknown]
  - Rash [Unknown]

NARRATIVE: CASE EVENT DATE: 20160718
